FAERS Safety Report 19268904 (Version 1)
Quarter: 2021Q2

REPORT INFORMATION
  Report Type: Spontaneous
  Country: NO (occurrence: NO)
  Receive Date: 20210517
  Receipt Date: 20210517
  Transmission Date: 20210717
  Serious: Yes (Other)
  Sender: FDA-Public Use
  Company Number: NO-PFIZER INC-2021492149

PATIENT
  Age: 63 Year
  Sex: Female

DRUGS (17)
  1. TAXOL [Suspect]
     Active Substance: PACLITAXEL
     Dosage: 150 MG
     Route: 042
     Dates: start: 20201202
  2. PERJETA [Suspect]
     Active Substance: PERTUZUMAB
     Dosage: 420 MG
     Route: 042
     Dates: start: 20201125
  3. DOCETAXEL. [Suspect]
     Active Substance: DOCETAXEL
     Indication: HER2 POSITIVE BREAST CANCER
     Dosage: 188 MG
     Route: 042
     Dates: start: 20201014
  4. TRAZIMERA [Suspect]
     Active Substance: TRASTUZUMAB-QYYP
     Dosage: 438 MG
     Route: 042
  5. PERJETA [Suspect]
     Active Substance: PERTUZUMAB
     Indication: HER2 POSITIVE BREAST CANCER
     Dosage: 840 MG
     Route: 042
     Dates: start: 20201105
  6. TAXOL [Suspect]
     Active Substance: PACLITAXEL
     Indication: HER2 POSITIVE BREAST CANCER
     Dosage: 150 MG
     Route: 042
     Dates: start: 20201104
  7. TAXOL [Suspect]
     Active Substance: PACLITAXEL
     Dosage: 150 MG
     Route: 042
     Dates: start: 20201125
  8. TAXOL [Suspect]
     Active Substance: PACLITAXEL
     Dosage: 150 MG
     Route: 042
     Dates: start: 20201216
  9. TRAZIMERA [Suspect]
     Active Substance: TRASTUZUMAB-QYYP
     Indication: HER2 POSITIVE BREAST CANCER
     Dosage: 584 MG
     Route: 042
  10. TAXOL [Suspect]
     Active Substance: PACLITAXEL
     Dosage: 150 MG
     Route: 042
     Dates: start: 20201230
  11. HERCEPTIN [Suspect]
     Active Substance: TRASTUZUMAB
     Indication: HER2 POSITIVE BREAST CANCER
     Dosage: UNK
     Route: 065
  12. TAXOL [Suspect]
     Active Substance: PACLITAXEL
     Dosage: 150 MG
     Route: 042
     Dates: start: 20201223
  13. PERJETA [Suspect]
     Active Substance: PERTUZUMAB
     Dosage: 420 MG
     Route: 042
     Dates: start: 20201216, end: 20201216
  14. TAXOL [Suspect]
     Active Substance: PACLITAXEL
     Dosage: 150 MG
     Route: 042
     Dates: start: 20201111
  15. TAXOL [Suspect]
     Active Substance: PACLITAXEL
     Dosage: 150 MG
     Route: 042
     Dates: start: 20201209
  16. TRAZIMERA [Suspect]
     Active Substance: TRASTUZUMAB-QYYP
     Dosage: 429 MG
     Route: 042
     Dates: start: 20201216, end: 20201216
  17. TAXOL [Suspect]
     Active Substance: PACLITAXEL
     Dosage: 150 MG
     Route: 042
     Dates: start: 20201118

REACTIONS (2)
  - Myocarditis [Unknown]
  - Chest pain [Unknown]

NARRATIVE: CASE EVENT DATE: 20201204
